FAERS Safety Report 21915740 (Version 1)
Quarter: 2023Q1

REPORT INFORMATION
  Report Type: Spontaneous
  Country: US (occurrence: None)
  Receive Date: 20230125
  Receipt Date: 20230125
  Transmission Date: 20230418
  Serious: Yes (Hospitalization)
  Sender: FDA-Public Use
  Company Number: None

PATIENT
  Age: 49 Year
  Sex: Female

DRUGS (7)
  1. AMBRISENTAN [Suspect]
     Active Substance: AMBRISENTAN
     Indication: Pulmonary hypertension
     Dosage: FREQUENCY : DAILY;?
     Route: 048
     Dates: start: 20210803
  2. TADALAFIL [Concomitant]
  3. POTASSIUM CHLORIDE [Concomitant]
  4. TORSEMIDE [Concomitant]
  5. MYCOPHENOLATE [Concomitant]
  6. MIDODRINE [Concomitant]
  7. GABAPENTIN [Concomitant]

REACTIONS (3)
  - Cerebrovascular accident [None]
  - Hypotension [None]
  - Anxiety [None]

NARRATIVE: CASE EVENT DATE: 20230111
